FAERS Safety Report 18826022 (Version 1)
Quarter: 2021Q1

REPORT INFORMATION
  Report Type: Other
  Country: JP (occurrence: JP)
  Receive Date: 20210202
  Receipt Date: 20210202
  Transmission Date: 20210419
  Serious: Yes (Hospitalization)
  Sender: FDA-Public Use
  Company Number: JP-B.BRAUN MEDICAL INC.-2106198

PATIENT
  Age: 60 Year
  Sex: Female

DRUGS (2)
  1. POTASSIUM CHLORIDE FOR INJECTION CONCENTRATE USP 0264?1940?20 (ANDA 08 [Suspect]
     Active Substance: POTASSIUM CHLORIDE
     Route: 042
  2. SODIUM CHLORIDE. [Concomitant]
     Active Substance: SODIUM CHLORIDE
     Route: 042

REACTIONS (1)
  - Hypernatraemia [Recovered/Resolved]
